FAERS Safety Report 6583009-1 (Version None)
Quarter: 2010Q1

REPORT INFORMATION
  Report Type: 
  Country: None (occurrence: None)
  Receive Date: 20100216
  Receipt Date: 20100201
  Transmission Date: 20100710
  Serious: Yes (Death, Hospitalization)
  Sender: FDA-Public Use
  Company Number: JP-ROCHE-647079

PATIENT
  Sex: Male
  Weight: 62 kg

DRUGS (5)
  1. AVASTIN [Suspect]
     Indication: LARGE INTESTINE CARCINOMA
     Route: 042
     Dates: start: 20090120, end: 20090218
  2. IRINOTECAN HYDROCHLORIDE [Concomitant]
     Route: 042
     Dates: start: 20090120, end: 20090218
  3. FLUOROURACIL [Concomitant]
     Route: 040
     Dates: start: 20090120, end: 20090218
  4. LEVOFOLINATE [Concomitant]
     Route: 042
     Dates: start: 20090120, end: 20090218
  5. FLUOROURACIL [Concomitant]
     Route: 041
     Dates: start: 20090120, end: 20090218

REACTIONS (3)
  - DISEASE PROGRESSION [None]
  - ILEAL PERFORATION [None]
  - PERITONITIS [None]
